FAERS Safety Report 16879733 (Version 1)
Quarter: 2019Q4

REPORT INFORMATION
  Report Type: Spontaneous
  Country: IT (occurrence: IT)
  Receive Date: 20191003
  Receipt Date: 20191003
  Transmission Date: 20200122
  Serious: Yes (Life-Threatening, Hospitalization, Other)
  Sender: FDA-Public Use
  Company Number: IT-PFIZER INC-2015406107

PATIENT
  Age: 60 Year
  Sex: Male
  Weight: 55 kg

DRUGS (5)
  1. DOLOBID [Concomitant]
     Active Substance: DIFLUNISAL
     Indication: AMYLOIDOSIS
     Dosage: UNK
     Route: 048
     Dates: start: 201306
  2. VYNDAQEL [Suspect]
     Active Substance: TAFAMIDIS MEGLUMINE
     Indication: AMYLOIDOSIS
     Dosage: 20 MG, DAILY
     Dates: start: 20140315
  3. MOTILIUM [Concomitant]
     Active Substance: DOMPERIDONE
     Dosage: UNK
     Route: 048
     Dates: start: 201501
  4. LASIX [Concomitant]
     Active Substance: FUROSEMIDE
     Dosage: UNK
     Route: 048
     Dates: start: 201501
  5. ESOPRAL [Concomitant]
     Active Substance: ESOMEPRAZOLE
     Indication: GASTRITIS
     Dosage: UNK
     Route: 048
     Dates: start: 201501

REACTIONS (4)
  - Sepsis [Recovered/Resolved]
  - Cholecystitis acute [Recovered/Resolved]
  - Product use in unapproved indication [Unknown]
  - Off label use [Unknown]

NARRATIVE: CASE EVENT DATE: 20140315
